FAERS Safety Report 22297399 (Version 1)
Quarter: 2023Q2

REPORT INFORMATION
  Report Type: Report from Study
  Country: US (occurrence: US)
  Receive Date: 20230509
  Receipt Date: 20230509
  Transmission Date: 20230722
  Serious: No
  Sender: FDA-Public Use
  Company Number: US-002147023-NVSC2023US102954

PATIENT
  Age: 52 Year
  Sex: Female

DRUGS (5)
  1. NILOTINIB [Suspect]
     Active Substance: NILOTINIB
     Indication: Chronic myeloid leukaemia
     Dosage: 400 MG, QD
     Route: 048
     Dates: start: 202209, end: 202209
  2. NILOTINIB [Suspect]
     Active Substance: NILOTINIB
     Dosage: 50 MG (TOOK IT FOR 5-6 WEEKS, GOING UP BY 50 DOSES EACH WEEK)
     Route: 065
     Dates: start: 202211
  3. NILOTINIB [Suspect]
     Active Substance: NILOTINIB
     Dosage: 200 MG, QD (SHE WAS SWITCH TO A SINGLE TABLET (A YELLOW COLOR))
     Route: 065
  4. NILOTINIB [Suspect]
     Active Substance: NILOTINIB
     Dosage: 50 MG TABLET
     Route: 065
  5. NILOTINIB [Suspect]
     Active Substance: NILOTINIB
     Dosage: 450 MG, QD (3 150 MG RED TABLETS)
     Route: 065
     Dates: start: 202303

REACTIONS (5)
  - Malaise [Unknown]
  - Abdominal pain upper [Unknown]
  - Acne [Unknown]
  - Rash [Unknown]
  - Alopecia [Unknown]

NARRATIVE: CASE EVENT DATE: 20220901
